FAERS Safety Report 4756805-0 (Version None)
Quarter: 2005Q3

REPORT INFORMATION
  Report Type: 
  Country: None (occurrence: None)
  Receive Date: 20050830
  Receipt Date: 20050823
  Transmission Date: 20060218
  Serious: Yes (Other)
  Sender: FDA-Public Use
  Company Number: US-BRISTOL-MYERS SQUIBB COMPANY-13088406

PATIENT
  Age: 72 Year
  Sex: Male
  Weight: 86 kg

DRUGS (11)
  1. ERBITUX [Suspect]
     Indication: COLON CANCER METASTATIC
     Dosage: 800 MG TO BE INFUSED.  RECEIVED {25 MG.
     Route: 042
     Dates: start: 20050818, end: 20050818
  2. ATACAND [Concomitant]
  3. ATIVAN [Concomitant]
     Indication: PREMEDICATION
     Dates: start: 20050818, end: 20050818
  4. BENADRYL [Concomitant]
     Indication: PREMEDICATION
     Dates: start: 20050818, end: 20050818
  5. DECADRON [Concomitant]
     Indication: PREMEDICATION
     Dates: start: 20050818, end: 20050818
  6. TYLENOL [Concomitant]
     Indication: PREMEDICATION
     Dates: start: 20050818, end: 20050818
  7. ZOFRAN [Concomitant]
     Indication: PREMEDICATION
     Dates: start: 20050818, end: 20050818
  8. COMPAZINE [Concomitant]
  9. GLYBURIDE [Concomitant]
  10. OXYCODONE [Concomitant]
  11. SYNTHROID [Concomitant]

REACTIONS (8)
  - BLOOD PRESSURE IMMEASURABLE [None]
  - FEELING COLD [None]
  - HYPERHIDROSIS [None]
  - INFUSION RELATED REACTION [None]
  - LOSS OF CONSCIOUSNESS [None]
  - MALAISE [None]
  - OXYGEN SATURATION DECREASED [None]
  - PRURITUS [None]
